FAERS Safety Report 9586267 (Version 1)
Quarter: 2013Q3

REPORT INFORMATION
  Report Type: Spontaneous
  Country: GB (occurrence: None)
  Receive Date: 20130926
  Receipt Date: 20130926
  Transmission Date: 20140515
  Serious: Yes (Other)
  Sender: FDA-Public Use
  Company Number: 2012-01418

PATIENT
  Age: 39 Year
  Sex: Male
  Weight: 116 kg

DRUGS (5)
  1. SIMVASTATIN (UNKNOWN) (SIMVASTATIN) UNK, UNKUNK [Suspect]
     Indication: PRODUCT USED FOR UNKNOWN INDICATION
     Route: 048
     Dates: start: 2007, end: 20120724
  2. VALPROIC ACID (UNKNOWN) [Suspect]
     Indication: AFFECTIVE DISORDER
     Route: 048
     Dates: start: 20120702
  3. VALPROIC ACID (UNKNOWN) [Suspect]
     Indication: SCHIZOPHRENIA
     Route: 048
     Dates: start: 20120702
  4. CITALOPRAM (CITALOPRAM) [Concomitant]
  5. OLANZAPINE [Concomitant]

REACTIONS (2)
  - Blood creatine phosphokinase increased [None]
  - Myalgia [None]
